FAERS Safety Report 4305608-X (Version None)
Quarter: 2004Q1

REPORT INFORMATION
  Report Type: 
  Country: None (occurrence: None)
  Receive Date: 20040226
  Receipt Date: 20031212
  Transmission Date: 20041129
  Serious: No
  Sender: FDA-Public Use
  Company Number: US-BRISTOL-MYERS SQUIBB COMPANY-12456877

PATIENT
  Age: 17 Year
  Sex: Male
  Weight: 70 kg

DRUGS (3)
  1. ABILIFY [Suspect]
     Indication: AGGRESSION
     Route: 048
     Dates: start: 20031013, end: 20031031
  2. METHYLPHENIDATE HCL [Concomitant]
  3. PROZAC [Concomitant]

REACTIONS (2)
  - FEELING COLD [None]
  - HYPERTENSION [None]
